FAERS Safety Report 20646774 (Version 1)
Quarter: 2022Q1

REPORT INFORMATION
  Report Type: Spontaneous
  Country: FR (occurrence: FR)
  Receive Date: 20220329
  Receipt Date: 20220329
  Transmission Date: 20220423
  Serious: Yes (Hospitalization, Other)
  Sender: FDA-Public Use
  Company Number: FR-AFSSAPS-LL20221117

PATIENT
  Age: 1 Day

DRUGS (3)
  1. PAROXETINE [Suspect]
     Active Substance: PAROXETINE
     Indication: COVID-19 immunisation
     Dosage: 10 MILLIGRAM
     Route: 064
     Dates: start: 2021, end: 202112
  2. COMIRNATY [Suspect]
     Active Substance: TOZINAMERAN
     Indication: COVID-19 immunisation
     Dosage: 1 DOSAGE FORM (D1)
     Route: 030
     Dates: start: 20211026
  3. COMIRNATY [Suspect]
     Active Substance: TOZINAMERAN
     Dosage: 1 DOSAGE FORM (D2)
     Route: 030
     Dates: start: 20211119

REACTIONS (2)
  - Pulmonary arterial hypertension [Recovering/Resolving]
  - Perinatal stroke [Recovering/Resolving]

NARRATIVE: CASE EVENT DATE: 20211227
